FAERS Safety Report 15203626 (Version 2)
Quarter: 2018Q3

REPORT INFORMATION
  Report Type: Spontaneous
  Country: US (occurrence: US)
  Receive Date: 20180726
  Receipt Date: 20180918
  Transmission Date: 20181010
  Serious: Yes (Life-Threatening, Hospitalization, Other)
  Sender: FDA-Public Use
  Company Number: US-ASTRAZENECA-2018SE94050

PATIENT
  Age: 26271 Day
  Sex: Female
  Weight: 68.9 kg

DRUGS (2)
  1. BRILINTA [Suspect]
     Active Substance: TICAGRELOR
     Indication: STENT PLACEMENT
     Dosage: 90.0MG UNKNOWN
     Route: 048
     Dates: start: 20180701, end: 20180707
  2. BRILINTA [Suspect]
     Active Substance: TICAGRELOR
     Indication: ACUTE MYOCARDIAL INFARCTION
     Dosage: 90.0MG UNKNOWN
     Route: 048
     Dates: start: 20180701, end: 20180707

REACTIONS (3)
  - Dyspnoea [Unknown]
  - Cerebral haemorrhage [Unknown]
  - Hemianopia [Unknown]

NARRATIVE: CASE EVENT DATE: 20180706
